FAERS Safety Report 6191439-5 (Version None)
Quarter: 2009Q2

REPORT INFORMATION
  Report Type: 
  Country: None (occurrence: None)
  Receive Date: 20090515
  Receipt Date: 20090506
  Transmission Date: 20091009
  Serious: Yes (Hospitalization)
  Sender: FDA-Public Use
  Company Number: FR-WYE-G02139908

PATIENT
  Sex: Male
  Weight: 77 kg

DRUGS (5)
  1. TORISEL [Suspect]
     Indication: METASTATIC RENAL CELL CARCINOMA
     Route: 042
     Dates: start: 20080717, end: 20080904
  2. TORISEL [Suspect]
     Dosage: UNKNOWN
     Route: 042
     Dates: start: 20080925, end: 20081017
  3. PANTOPRAZOLE SODIUM [Suspect]
     Indication: ABDOMINAL PAIN UPPER
     Dosage: 20 MG; FREQUENCY UNSPECIFIED
     Route: 048
     Dates: start: 20080828, end: 20080911
  4. AVASTIN [Suspect]
     Indication: METASTATIC RENAL CELL CARCINOMA
     Route: 042
     Dates: start: 20080717, end: 20080904
  5. AVASTIN [Suspect]
     Dosage: UNKNOWN
     Route: 042
     Dates: start: 20080918

REACTIONS (8)
  - ABDOMINAL PAIN UPPER [None]
  - ALANINE AMINOTRANSFERASE INCREASED [None]
  - ASPARTATE AMINOTRANSFERASE INCREASED [None]
  - BLOOD ALKALINE PHOSPHATASE INCREASED [None]
  - BLOOD BILIRUBIN INCREASED [None]
  - BLOOD LACTATE DEHYDROGENASE INCREASED [None]
  - GAMMA-GLUTAMYLTRANSFERASE INCREASED [None]
  - HEPATIC PAIN [None]
